FAERS Safety Report 24661327 (Version 2)
Quarter: 2024Q4

REPORT INFORMATION
  Report Type: Spontaneous
  Country: CH (occurrence: CH)
  Receive Date: 20241125
  Receipt Date: 20241226
  Transmission Date: 20250114
  Serious: Yes (Hospitalization)
  Sender: BAUSCH AND LOMB
  Company Number: CH-BAUSCH-BL-2024-017159

PATIENT
  Age: 43 Year
  Sex: Female
  Weight: 50 kg

DRUGS (1)
  1. XIFAXAN [Suspect]
     Active Substance: RIFAXIMIN
     Indication: Product used for unknown indication
     Dosage: 3 DOSAGE FORM, 1 IN 8 HOUR
     Route: 048
     Dates: start: 20240716, end: 20240725

REACTIONS (3)
  - Periostitis [Not Recovered/Not Resolved]
  - Pain [Unknown]
  - Bone marrow oedema [Unknown]

NARRATIVE: CASE EVENT DATE: 20240726
